FAERS Safety Report 14688269 (Version 1)
Quarter: 2018Q1

REPORT INFORMATION
  Report Type: Report from Study
  Country: US (occurrence: US)
  Receive Date: 20180328
  Receipt Date: 20180328
  Transmission Date: 20180509
  Serious: Yes (Other)
  Sender: FDA-Public Use
  Company Number: US-ACCORD-064821

PATIENT
  Age: 54 Year
  Sex: Male

DRUGS (2)
  1. ZIPRASIDONE/ZIPRASIDONE HYDROCHLORIDE/ZIPRASIDONE MESILATE [Interacting]
     Active Substance: ZIPRASIDONE HYDROCHLORIDE\ZIPRASIDONE MESYLATE
     Indication: PRODUCT USED FOR UNKNOWN INDICATION
  2. ONDANSETRON [Suspect]
     Active Substance: ONDANSETRON
     Indication: PRODUCT USED FOR UNKNOWN INDICATION
     Dosage: SINGLE DOSE
     Route: 042

REACTIONS (3)
  - Electrocardiogram QT prolonged [Unknown]
  - Contraindicated product administered [Unknown]
  - Drug interaction [Unknown]
